FAERS Safety Report 10239242 (Version 1)
Quarter: 2014Q2

REPORT INFORMATION
  Report Type: Spontaneous
  Country: US (occurrence: US)
  Receive Date: 20140616
  Receipt Date: 20140616
  Transmission Date: 20141212
  Serious: No
  Sender: FDA-Public Use
  Company Number: US-BIOGENIDEC-2014BI056240

PATIENT
  Sex: Female

DRUGS (2)
  1. AVONEX [Suspect]
     Indication: MULTIPLE SCLEROSIS
     Route: 030
     Dates: start: 20000225
  2. AVONEX [Suspect]
     Indication: MULTIPLE SCLEROSIS
     Route: 030
     Dates: start: 20140220

REACTIONS (6)
  - Drug dose omission [Unknown]
  - Visual impairment [Unknown]
  - Temperature intolerance [Unknown]
  - Influenza like illness [Unknown]
  - Anxiety [Unknown]
  - Multiple sclerosis relapse [Unknown]
